FAERS Safety Report 8439520-1 (Version None)
Quarter: 2012Q2

REPORT INFORMATION
  Report Type: 
  Country: None (occurrence: None)
  Receive Date: 20120615
  Receipt Date: 20120613
  Transmission Date: 20120825
  Serious: Yes (Hospitalization, Other)
  Sender: FDA-Public Use
  Company Number: US-PFIZER INC-2010092631

PATIENT
  Sex: Female
  Weight: 68.027 kg

DRUGS (26)
  1. CIPROFLOXACIN [Interacting]
     Dosage: UNK
  2. REGLAN [Interacting]
     Dosage: UNK
  3. NORVASC [Interacting]
     Dosage: 5 MG, DAILY
     Dates: start: 19970101
  4. XANAX [Interacting]
     Dosage: 1/2 TABLET QD
  5. DEPAKOTE [Interacting]
     Indication: CONVULSION
     Dosage: UNK
     Dates: start: 19950101, end: 20040101
  6. TOPROL-XL [Interacting]
     Indication: FLUSHING
  7. MACROBID [Interacting]
     Dosage: UNK
  8. BACTRIM [Interacting]
     Dosage: UNK
  9. ATACAND [Interacting]
     Indication: RENAL DISORDER
     Dosage: 32 MG, 1X/DAY
     Dates: start: 19950101
  10. LEVAQUIN [Interacting]
     Dosage: UNK
  11. LIDOCAINE [Suspect]
     Indication: INGROWING NAIL
     Dosage: UNK
     Dates: start: 20100513, end: 20100513
  12. DILANTIN [Interacting]
     Indication: CONVULSION
     Dosage: UNK
     Dates: start: 19950101
  13. LEVOTHYROXINE SODIUM [Concomitant]
     Dosage: UNK
  14. FUROSEMIDE [Interacting]
  15. LISINOPRIL [Interacting]
     Dosage: UNK
  16. LOSARTAN POTASSIUM [Interacting]
     Dosage: UNK
  17. BENICAR [Interacting]
     Indication: HYPERTENSION
     Dosage: UNK
  18. AVAPRO [Interacting]
     Indication: HYPERTENSION
     Dosage: UNK
  19. HYDROCHLOROTHIAZIDE [Interacting]
     Dosage: UNK
  20. NEBIVOLOL [Interacting]
     Dosage: UNK
  21. CLONIDINE [Concomitant]
     Indication: BLOOD PRESSURE ABNORMAL
     Dosage: 0.5 MG, 3X/DAY
     Route: 048
  22. NORVASC [Interacting]
     Indication: HYPERTENSION
     Dosage: 2.5 MG, 1X/DAY
     Dates: start: 19940101
  23. NORVASC [Interacting]
     Dosage: 5 MG, 2X/DAY
     Dates: start: 20100101
  24. CARDIZEM [Interacting]
     Dosage: UNK
  25. VALSARTAN [Interacting]
     Dosage: UNK
  26. TOPROL-XL [Interacting]
     Indication: HEART RATE ABNORMAL
     Dosage: 25 MG, DAILY

REACTIONS (20)
  - FULL BLOOD COUNT DECREASED [None]
  - FALL [None]
  - CYSTITIS [None]
  - CHOLECYSTECTOMY [None]
  - DRUG INEFFECTIVE [None]
  - INGROWING NAIL [None]
  - DIZZINESS [None]
  - LOSS OF CONSCIOUSNESS [None]
  - BURNING SENSATION [None]
  - PALPITATIONS [None]
  - HEADACHE [None]
  - ARTERIOGRAM CORONARY ABNORMAL [None]
  - TOE OPERATION [None]
  - WEIGHT DECREASED [None]
  - GASTRIC DISORDER [None]
  - HYPERTENSION [None]
  - CONVULSION [None]
  - FEELING HOT [None]
  - BLOOD COUNT ABNORMAL [None]
  - DRUG INTERACTION [None]
